FAERS Safety Report 19705640 (Version 1)
Quarter: 2021Q3

REPORT INFORMATION
  Report Type: Spontaneous
  Country: DE (occurrence: DE)
  Receive Date: 20210817
  Receipt Date: 20210817
  Transmission Date: 20211014
  Serious: Yes (Other)
  Sender: FDA-Public Use
  Company Number: DE-AUROBINDO-AUR-APL-2021-035094

PATIENT
  Age: 33 Year
  Sex: Male
  Weight: 86 kg

DRUGS (2)
  1. CIMETIDIN [CIMETIDINE] [Suspect]
     Active Substance: CIMETIDINE
     Indication: GASTRITIS
     Dosage: 400 MILLIGRAM
     Route: 048
     Dates: start: 20210201
  2. ESOMEPRAZOLE. [Suspect]
     Active Substance: ESOMEPRAZOLE MAGNESIUM
     Indication: GASTRITIS
     Dosage: 40 MILLIGRAM
     Route: 048
     Dates: start: 20201015

REACTIONS (1)
  - Keratoconus [Recovered/Resolved with Sequelae]

NARRATIVE: CASE EVENT DATE: 20210220
